FAERS Safety Report 8610824-2 (Version None)
Quarter: 2012Q3

REPORT INFORMATION
  Report Type: 
  Country: None (occurrence: None)
  Receive Date: 20120822
  Receipt Date: 20120814
  Transmission Date: 20120928
  Serious: Yes (Hospitalization)
  Sender: FDA-Public Use
  Company Number: AT-JNJFOC-20120801821

PATIENT
  Sex: Male
  Weight: 86 kg

DRUGS (14)
  1. REMICADE [Suspect]
     Route: 042
     Dates: start: 20110819
  2. REMICADE [Suspect]
     Route: 042
     Dates: start: 20101223
  3. SIMVASTATIN [Concomitant]
     Indication: HYPERLIPIDAEMIA
     Route: 048
  4. ENTEROCORT [Concomitant]
     Indication: COLITIS ULCERATIVE
     Dosage: DOSE: 1 (ILLEGIBLE UNITS)
     Route: 048
  5. REMICADE [Suspect]
     Route: 042
     Dates: start: 20110901
  6. ASPIRIN [Concomitant]
     Indication: CORONARY ARTERY DISEASE
     Route: 048
     Dates: end: 20120228
  7. REMICADE [Suspect]
     Route: 042
     Dates: start: 20110203
  8. ENTEROBENE [Concomitant]
     Indication: COLITIS ULCERATIVE
     Route: 048
     Dates: end: 20120225
  9. RAMIPRIL [Concomitant]
     Indication: CORONARY ARTERY DISEASE
     Route: 048
  10. REMICADE [Suspect]
     Route: 042
     Dates: start: 20110524
  11. REMICADE [Suspect]
     Route: 042
     Dates: start: 20101129
  12. REMICADE [Suspect]
     Route: 042
     Dates: start: 20101115
  13. REMICADE [Suspect]
     Route: 042
     Dates: start: 20110418
  14. REMICADE [Suspect]
     Indication: COLITIS ULCERATIVE
     Route: 042
     Dates: start: 20110712

REACTIONS (1)
  - COLITIS ULCERATIVE [None]
